FAERS Safety Report 9198894 (Version 1)
Quarter: 2013Q1

REPORT INFORMATION
  Report Type: Spontaneous
  Country: AU (occurrence: AU)
  Receive Date: 20130329
  Receipt Date: 20130329
  Transmission Date: 20140127
  Serious: Yes (Death, Hospitalization, Other)
  Sender: FDA-Public Use
  Company Number: PHHY2013AU030341

PATIENT
  Age: 57 Year
  Sex: Male

DRUGS (11)
  1. TACROLIMUS [Suspect]
     Indication: IMMUNOSUPPRESSION
     Dosage: 4 MG, BID
  2. TACROLIMUS [Suspect]
     Dosage: 3 MG, BID
  3. PREDNISONE [Suspect]
     Indication: IMMUNOSUPPRESSION
     Dosage: 10 MG, DAILY
  4. PREDNISONE [Suspect]
     Dosage: 15 MG, DAILY
  5. MYCOPHENOLATE MOFETIL [Suspect]
     Indication: IMMUNOSUPPRESSION
     Dosage: 1 G, BID
  6. MYCOPHENOLATE MOFETIL [Suspect]
     Dosage: 750 MG, BID
  7. MYCOPHENOLATE MOFETIL [Suspect]
     Dosage: 250 MG, BID
  8. AZITHROMYCIN [Suspect]
     Route: 048
  9. CO-TRIMOXAZOLE [Suspect]
  10. LINEZOLID [Suspect]
  11. MEROPENEM [Concomitant]
     Route: 042

REACTIONS (18)
  - Pneumocystis jirovecii pneumonia [Fatal]
  - Hypoxia [Fatal]
  - Respiratory distress [Fatal]
  - Pleural effusion [Fatal]
  - Rhodococcus infection [Unknown]
  - Lung infection [Unknown]
  - Vomiting [Unknown]
  - Weight decreased [Unknown]
  - Lymphadenopathy mediastinal [Unknown]
  - Renal impairment [Unknown]
  - Tubulointerstitial nephritis [Unknown]
  - Nephropathy toxic [Recovering/Resolving]
  - Diarrhoea [Unknown]
  - Pyrexia [Unknown]
  - Lethargy [Unknown]
  - Dyspnoea [Unknown]
  - Nausea [Unknown]
  - Pulmonary mass [Unknown]
